FAERS Safety Report 15377607 (Version 2)
Quarter: 2018Q3

REPORT INFORMATION
  Report Type: Spontaneous
  Country: US (occurrence: US)
  Receive Date: 20180913
  Receipt Date: 20180924
  Transmission Date: 20181010
  Serious: No
  Sender: FDA-Public Use
  Company Number: PHEH2018US034481

PATIENT
  Sex: Female

DRUGS (1)
  1. KISQALI [Suspect]
     Active Substance: RIBOCICLIB
     Indication: BREAST CANCER FEMALE
     Dosage: 600 MG, QD 600MG DAILY ON DAYS 1?21, THEN OFF FOR 7 DAYS, REPEAT EVERY 28 DAYS.
     Route: 048

REACTIONS (4)
  - Disturbance in attention [Unknown]
  - Headache [Unknown]
  - Dizziness [Unknown]
  - Malaise [Recovering/Resolving]
